FAERS Safety Report 4931456-3 (Version None)
Quarter: 2006Q1

REPORT INFORMATION
  Report Type: 
  Country: None (occurrence: None)
  Receive Date: 20060228
  Receipt Date: 20060213
  Transmission Date: 20060701
  Serious: Yes (Hospitalization, Other)
  Sender: FDA-Public Use
  Company Number: US-2005-027471

PATIENT
  Age: 45 Year
  Sex: Male
  Weight: 73 kg

DRUGS (6)
  1. BETASERON [Suspect]
     Indication: PRIMARY PROGRESSIVE MULTIPLE SCLEROSIS
     Dosage: 8 MIU, EVERY 2D, SUBCUTANEOUS
     Route: 058
     Dates: start: 20040615, end: 20051228
  2. NEURONTIN [Concomitant]
  3. LEXAPRO [Concomitant]
  4. TEGRETOL [Concomitant]
  5. DANTRIUM [Concomitant]
  6. KLONOPIN [Concomitant]

REACTIONS (5)
  - DRUG INEFFECTIVE [None]
  - ECONOMIC PROBLEM [None]
  - EMBOLISM [None]
  - FATIGUE [None]
  - PHLEBITIS [None]
